FAERS Safety Report 4538641-3 (Version None)
Quarter: 2004Q4

REPORT INFORMATION
  Report Type: 
  Country: None (occurrence: None)
  Receive Date: 20041227
  Receipt Date: 20041217
  Transmission Date: 20050328
  Serious: Yes (Hospitalization)
  Sender: FDA-Public Use
  Company Number: JP-JNJFOC-20041205357

PATIENT
  Age: 39 Year
  Sex: Male

DRUGS (1)
  1. OFLOXACIN [Suspect]
     Route: 049

REACTIONS (7)
  - BASOPHILIA [None]
  - DIZZINESS [None]
  - DRUG INTOLERANCE [None]
  - EOSINOPHILIA [None]
  - GASTRIC ULCER [None]
  - GASTRITIS [None]
  - MYALGIA [None]
